FAERS Safety Report 25242695 (Version 3)
Quarter: 2025Q4

REPORT INFORMATION
  Report Type: Spontaneous
  Country: CA (occurrence: CA)
  Receive Date: 20250428
  Receipt Date: 20251103
  Transmission Date: 20260119
  Serious: Yes (Hospitalization)
  Sender: CELLTRION
  Company Number: CA-PFIZER INC-202500078386

PATIENT

DRUGS (4)
  1. INFLIXIMAB [Suspect]
     Active Substance: INFLIXIMAB
     Indication: Colitis ulcerative
     Dosage: 10 MG/KG
     Route: 042
  2. INFLIXIMAB [Suspect]
     Active Substance: INFLIXIMAB
     Dosage: 10 MG/KG
     Route: 042
  3. INFLECTRA [Suspect]
     Active Substance: INFLIXIMAB-DYYB
     Indication: Colitis ulcerative
     Dosage: 10 MG/KG, EVERY 4 WEEK
     Route: 042
     Dates: start: 20250328
  4. INFLECTRA [Suspect]
     Active Substance: INFLIXIMAB-DYYB
     Dosage: 10 MG/KG, EVERY 4 WEEKS
     Route: 042
     Dates: start: 20250425

REACTIONS (4)
  - Condition aggravated [Recovered/Resolved]
  - Ear pain [Recovered/Resolved]
  - Excessive cerumen production [Recovered/Resolved]
  - Intentional product use issue [Unknown]

NARRATIVE: CASE EVENT DATE: 20250101
